FAERS Safety Report 15523684 (Version 1)
Quarter: 2018Q4

REPORT INFORMATION
  Report Type: Spontaneous
  Country: FR (occurrence: FR)
  Receive Date: 20181019
  Receipt Date: 20181019
  Transmission Date: 20190205
  Serious: Yes (Hospitalization)
  Sender: FDA-Public Use
  Company Number: FR-LPDUSPRD-20181899

PATIENT
  Sex: Male
  Weight: 98 kg

DRUGS (5)
  1. GAVISCON [Concomitant]
     Active Substance: ALUMINUM HYDROXIDE\MAGNESIUM CARBONATE
     Dosage: UNKNOWN
     Route: 048
  2. FERINJECT [Suspect]
     Active Substance: FERRIC CARBOXYMALTOSE
     Dosage: 0.0476 DF (1 DF, 1 IN 3 WK)
     Route: 042
     Dates: start: 20140304, end: 20180615
  3. MOPRAL [Concomitant]
     Active Substance: OMEPRAZOLE
     Dosage: UNKNOWN
     Route: 048
  4. PARACETAMOL [Concomitant]
     Active Substance: ACETAMINOPHEN
     Dosage: UNKNOWN
     Route: 048
  5. KREDEX [Concomitant]
     Active Substance: CARVEDILOL
     Dosage: UNKNOWN
     Route: 048

REACTIONS (4)
  - Hyperphosphaturia [Unknown]
  - Hypophosphataemia [Recovered/Resolved]
  - Fibroblast growth factor 23 increased [Recovered/Resolved]
  - Osteomalacia [Recovering/Resolving]

NARRATIVE: CASE EVENT DATE: 2015
